FAERS Safety Report 8884069 (Version 2)
Quarter: 2013Q1

REPORT INFORMATION
  Report Type: Spontaneous
  Country: US (occurrence: US)
  Receive Date: 20121102
  Receipt Date: 20130117
  Transmission Date: 20140127
  Serious: Yes (Other)
  Sender: FDA-Public Use
  Company Number: US-ELI_LILLY_AND_COMPANY-US201210008877

PATIENT
  Sex: Female

DRUGS (3)
  1. FORTEO [Suspect]
     Indication: OSTEOPOROSIS
     Dosage: 20 UG, QD
     Dates: start: 20110924
  2. FORTEO [Suspect]
     Dosage: 20 UG, QD
     Dates: start: 20110924
  3. WELLBUTRIN [Concomitant]
     Indication: ATTENTION DEFICIT/HYPERACTIVITY DISORDER
     Dosage: UNK

REACTIONS (11)
  - Aortic valve stenosis [Not Recovered/Not Resolved]
  - Ataxia [Unknown]
  - Vertigo [Unknown]
  - Nausea [Unknown]
  - Hyperhidrosis [Unknown]
  - Vomiting [Unknown]
  - Heart valve incompetence [Unknown]
  - Tachycardia [Unknown]
  - Aortic calcification [Unknown]
  - Dyspnoea [Unknown]
  - Fibrin D dimer increased [Unknown]
